FAERS Safety Report 10150036 (Version 1)
Quarter: 2014Q2

REPORT INFORMATION
  Report Type: Spontaneous
  Country: IT (occurrence: NL)
  Receive Date: 20140502
  Receipt Date: 20140502
  Transmission Date: 20141212
  Serious: Yes (Hospitalization)
  Sender: FDA-Public Use
  Company Number: NL-FRI-1000066939

PATIENT
  Age: 68 Year
  Sex: Male

DRUGS (2)
  1. FOSFOMYCIN [Suspect]
     Indication: URINARY TRACT INFECTION
     Route: 048
     Dates: start: 20140321, end: 20140321
  2. FOSFOMYCIN [Suspect]
     Route: 048
     Dates: start: 20140404, end: 20140404

REACTIONS (6)
  - Erythema multiforme [Recovering/Resolving]
  - Oedema peripheral [Not Recovered/Not Resolved]
  - Decreased appetite [Unknown]
  - Pyrexia [Unknown]
  - Malaise [Unknown]
  - Off label use [Recovered/Resolved]
